FAERS Safety Report 13505386 (Version 4)
Quarter: 2018Q1

REPORT INFORMATION
  Report Type: Report from Study
  Country: US (occurrence: US)
  Receive Date: 20170502
  Receipt Date: 20180301
  Transmission Date: 20180508
  Serious: Yes (Hospitalization)
  Sender: FDA-Public Use
  Company Number: US-ACTELION-A-NJ2017-153130

PATIENT
  Age: 67 Year
  Sex: Female
  Weight: 71.66 kg

DRUGS (13)
  1. HUMALOG [Concomitant]
     Active Substance: INSULIN LISPRO
  2. VITAMIN D [Concomitant]
     Active Substance: CHOLECALCIFEROL
  3. NOVOLOG [Concomitant]
     Active Substance: INSULIN ASPART
  4. SYNTHROID [Concomitant]
     Active Substance: LEVOTHYROXINE SODIUM
  5. LASIX [Concomitant]
     Active Substance: FUROSEMIDE
  6. ARANESP [Concomitant]
     Active Substance: DARBEPOETIN ALFA
  7. CALCIUM [Concomitant]
     Active Substance: CALCIUM
  8. TRACLEER [Suspect]
     Active Substance: BOSENTAN
     Indication: PULMONARY ARTERIAL HYPERTENSION
     Dosage: 125 MG, QD
     Route: 048
     Dates: start: 20110310
  9. NIFEDIPINE. [Concomitant]
     Active Substance: NIFEDIPINE
  10. PREDNISONE. [Concomitant]
     Active Substance: PREDNISONE
  11. PRIMIDONE. [Concomitant]
     Active Substance: PRIMIDONE
  12. EPOGEN [Concomitant]
     Active Substance: ERYTHROPOIETIN
  13. NOVOLIN [Concomitant]
     Active Substance: INSULIN HUMAN

REACTIONS (9)
  - Respiration abnormal [Unknown]
  - Blood glucose decreased [Unknown]
  - Dyskinesia [Unknown]
  - Fall [Unknown]
  - Nausea [Unknown]
  - Type 1 diabetes mellitus [Unknown]
  - Contusion [Unknown]
  - Pneumonia [Recovered/Resolved]
  - Drug dose omission [Recovered/Resolved]

NARRATIVE: CASE EVENT DATE: 201802
